FAERS Safety Report 13861177 (Version 2)
Quarter: 2017Q4

REPORT INFORMATION
  Report Type: Spontaneous
  Country: GB (occurrence: GB)
  Receive Date: 20170811
  Receipt Date: 20171031
  Transmission Date: 20180320
  Serious: Yes (Death, Other)
  Sender: FDA-Public Use
  Company Number: GB-PFIZER INC-2017342334

PATIENT
  Age: 21 Year
  Sex: Male
  Weight: 73 kg

DRUGS (2)
  1. LUSTRAL [Suspect]
     Active Substance: SERTRALINE HYDROCHLORIDE
     Indication: DEPRESSION
     Dosage: 50MG OR 100 MG DAILY
     Route: 048
     Dates: end: 20161103
  2. LUSTRAL [Suspect]
     Active Substance: SERTRALINE HYDROCHLORIDE
     Indication: ANXIETY

REACTIONS (6)
  - Vomiting [Unknown]
  - Sudden cardiac death [Fatal]
  - Ketoacidosis [Fatal]
  - Antidepressant drug level increased [Not Recovered/Not Resolved]
  - Toxicity to various agents [Not Recovered/Not Resolved]
  - Malaise [Unknown]

NARRATIVE: CASE EVENT DATE: 20161103
